FAERS Safety Report 8471410-0 (Version None)
Quarter: 2012Q2

REPORT INFORMATION
  Report Type: 
  Country: None (occurrence: None)
  Receive Date: 20120627
  Receipt Date: 20120614
  Transmission Date: 20120825
  Serious: No
  Sender: FDA-Public Use
  Company Number: US-ASTRAZENECA-2012SE39960

PATIENT
  Sex: Female

DRUGS (17)
  1. FERROUS SULFATE TAB [Concomitant]
  2. SPIRIVA [Concomitant]
  3. IPRATROPIUM BROMIDE [Suspect]
     Indication: EMPHYSEMA
     Dosage: QID
     Route: 055
     Dates: start: 20120430
  4. CLONAZEPAM [Concomitant]
  5. ADVAIR DISKUS 100/50 [Concomitant]
  6. BUDESONIDE [Suspect]
     Indication: EMPHYSEMA
     Dosage: BID
     Route: 055
     Dates: start: 20120430
  7. VITAMIN D [Concomitant]
  8. BENICAR [Concomitant]
  9. FISH OIL [Concomitant]
  10. LEVOTHYROXINE [Concomitant]
  11. MULTI-VITAMINS [Concomitant]
  12. OMEPRAZOLE [Concomitant]
  13. BROVANA [Suspect]
     Indication: EMPHYSEMA
     Route: 055
     Dates: start: 20120430
  14. BROVANA [Suspect]
     Indication: PULMONARY OEDEMA
     Route: 055
     Dates: start: 20120430
  15. ASPIRIN [Concomitant]
  16. UNSPECIFIED MEDICATION FOR BLOOD PRESSURE [Concomitant]
     Indication: BLOOD PRESSURE ABNORMAL
  17. VENTOLIN HFA [Concomitant]

REACTIONS (4)
  - FEELING ABNORMAL [None]
  - DYSPNOEA [None]
  - TERMINAL INSOMNIA [None]
  - OFF LABEL USE [None]
